FAERS Safety Report 5734910-X (Version None)
Quarter: 2008Q2

REPORT INFORMATION
  Report Type: 
  Country: None (occurrence: None)
  Receive Date: 20080508
  Receipt Date: 20080508
  Transmission Date: 20081010
  Serious: Yes (Other)
  Sender: FDA-Public Use
  Company Number: None

PATIENT
  Age: 35 Year
  Sex: Female
  Weight: 73.4827 kg

DRUGS (1)
  1. CREST PRO HEALTH [Suspect]
     Indication: DENTAL DISORDER PROPHYLAXIS
     Dates: start: 20080403, end: 20080505

REACTIONS (4)
  - AGEUSIA [None]
  - DYSGEUSIA [None]
  - HYPOAESTHESIA ORAL [None]
  - STOMATITIS [None]
